FAERS Safety Report 23040826 (Version 1)
Quarter: 2023Q4

REPORT INFORMATION
  Report Type: Spontaneous
  Country: US (occurrence: US)
  Receive Date: 20231006
  Receipt Date: 20231006
  Transmission Date: 20240109
  Serious: No
  Sender: FDA-Public Use
  Company Number: US-JUBILANT CADISTA PHARMACEUTICALS INC.-2023JUB00131

PATIENT
  Age: 8 Decade
  Sex: Male

DRUGS (5)
  1. PREDNISONE [Suspect]
     Active Substance: PREDNISONE
     Dosage: OFF AND ON
     Dates: start: 202301, end: 2023
  2. PREDNISONE [Suspect]
     Active Substance: PREDNISONE
     Dosage: OFF AND ON
     Dates: start: 202302
  3. UNSPECIFIED ANTIHISTAMINES (H1 AND H2 BLOCKERS) [Concomitant]
     Dosage: UNK
  4. MONTELUKAST [Concomitant]
     Active Substance: MONTELUKAST SODIUM
  5. UNSPECIFIED INGREDIENT [Concomitant]
     Active Substance: UNSPECIFIED INGREDIENT

REACTIONS (3)
  - Food allergy [Not Recovered/Not Resolved]
  - Arthropod bite [Unknown]
  - Cerebral disorder [Unknown]

NARRATIVE: CASE EVENT DATE: 20230101
